FAERS Safety Report 11860115 (Version 2)
Quarter: 2016Q1

REPORT INFORMATION
  Report Type: Report from Study
  Country: TR (occurrence: TR)
  Receive Date: 20151222
  Receipt Date: 20160115
  Transmission Date: 20160526
  Serious: Yes (Death)
  Sender: FDA-Public Use
  Company Number: TR-PFIZER INC-2015440743

PATIENT
  Age: 72 Year

DRUGS (1)
  1. PALBOCICLIB [Suspect]
     Active Substance: PALBOCICLIB
     Indication: BREAST CANCER METASTATIC
     Dosage: 125 MG, UNK
     Dates: start: 2015

REACTIONS (2)
  - Disease progression [Fatal]
  - Breast cancer metastatic [Fatal]
